FAERS Safety Report 10203246 (Version 1)
Quarter: 2014Q2

REPORT INFORMATION
  Report Type: Spontaneous
  Country: US (occurrence: US)
  Receive Date: 20140529
  Receipt Date: 20140529
  Transmission Date: 20141212
  Serious: Yes (Hospitalization)
  Sender: FDA-Public Use
  Company Number: US-JNJFOC-20140514377

PATIENT
  Age: 4 Year
  Sex: Female

DRUGS (1)
  1. BENADRYL [Suspect]
     Indication: ACCIDENTAL EXPOSURE TO PRODUCT
     Dosage: HALF A BOTTLE
     Route: 048
     Dates: start: 20140125

REACTIONS (3)
  - Toxicity to various agents [Unknown]
  - Accidental overdose [Unknown]
  - Failure of child resistant mechanism for pharmaceutical product [Unknown]
